FAERS Safety Report 4744646-X (Version None)
Quarter: 2005Q3

REPORT INFORMATION
  Report Type: 
  Country: None (occurrence: None)
  Receive Date: 20050812
  Receipt Date: 20050812
  Transmission Date: 20060218
  Serious: Yes (Life-Threatening, Hospitalization)
  Sender: FDA-Public Use
  Company Number: None

PATIENT
  Sex: Female
  Weight: 48.0813 kg

DRUGS (4)
  1. ENBREL [Suspect]
     Indication: ARTHRITIS
     Dosage: 0.98ML OF 50MG/ML,ONCE A WEEK, UNDER THE SKIN   ~1.5 YEARS, ENDING WITH LAST DOSE 7/11/2005
  2. ARTHROTEC [Concomitant]
  3. IMODIUM [Concomitant]
  4. ADVIL [Concomitant]

REACTIONS (6)
  - CHILLS [None]
  - DIARRHOEA [None]
  - HYPOTENSION [None]
  - MENINGITIS [None]
  - PAIN [None]
  - PYREXIA [None]
